FAERS Safety Report 7796192-7 (Version None)
Quarter: 2011Q4

REPORT INFORMATION
  Report Type: 
  Country: None (occurrence: None)
  Receive Date: 20111004
  Receipt Date: 20110924
  Transmission Date: 20120403
  Serious: Yes (Hospitalization, Other)
  Sender: FDA-Public Use
  Company Number: US-US-EMD SERONO, INC.-7086665

PATIENT
  Sex: Male

DRUGS (4)
  1. REBIF [Suspect]
     Indication: MULTIPLE SCLEROSIS
     Route: 058
     Dates: start: 20050903
  2. NIACIN [Concomitant]
  3. REBIF [Suspect]
     Route: 058
  4. TYLENOL-500 [Concomitant]
     Indication: PREMEDICATION

REACTIONS (3)
  - MYOCARDIAL INFARCTION [None]
  - HEART VALVE STENOSIS [None]
  - BLINDNESS TRANSIENT [None]
